FAERS Safety Report 21952015 (Version 1)
Quarter: 2023Q1

REPORT INFORMATION
  Report Type: Report from Study
  Country: US (occurrence: US)
  Receive Date: 20230203
  Receipt Date: 20230203
  Transmission Date: 20230417
  Serious: No
  Sender: FDA-Public Use
  Company Number: US-EXELIXIS-CABO-22048606

PATIENT
  Sex: Male
  Weight: 126.89 kg

DRUGS (1)
  1. CABOMETYX [Suspect]
     Active Substance: CABOZANTINIB S-MALATE
     Indication: Renal cancer
     Dosage: 40 MG, QD
     Route: 048
     Dates: start: 20210601

REACTIONS (4)
  - Emotional disorder [Unknown]
  - Acne [Unknown]
  - Gastrooesophageal reflux disease [Unknown]
  - Headache [Unknown]
